FAERS Safety Report 22367389 (Version 1)
Quarter: 2023Q2

REPORT INFORMATION
  Report Type: Spontaneous
  Country: US (occurrence: US)
  Receive Date: 20230525
  Receipt Date: 20230525
  Transmission Date: 20230721
  Serious: Yes (Death, Life-Threatening, Hospitalization, Disabling, Other)
  Sender: FDA-Public Use
  Company Number: US-009507513-2305USA006293

PATIENT
  Age: 73 Year
  Sex: Female

DRUGS (1)
  1. KEYTRUDA [Suspect]
     Active Substance: PEMBROLIZUMAB
     Indication: Lung neoplasm malignant
     Dates: start: 20230103, end: 20230103

REACTIONS (5)
  - Cardio-respiratory arrest [Fatal]
  - Blood potassium increased [Unknown]
  - Hospice care [Unknown]
  - Neoplasm malignant [Unknown]
  - Renal impairment [Unknown]

NARRATIVE: CASE EVENT DATE: 20230101
